FAERS Safety Report 10028011 (Version 2)
Quarter: 2014Q1

REPORT INFORMATION
  Report Type: Spontaneous
  Country: US (occurrence: US)
  Receive Date: 20140321
  Receipt Date: 20140321
  Transmission Date: 20141002
  Serious: Yes (Disabling)
  Sender: FDA-Public Use
  Company Number: US-GE HEALTHCARE MEDICAL DIAGNOSTICS-OSCN-PR-0805S-0310

PATIENT
  Age: 55 Year
  Sex: Female

DRUGS (13)
  1. OMNISCAN [Suspect]
     Indication: TRANSPLANT EVALUATION
     Route: 042
     Dates: start: 20060411, end: 20060411
  2. OMNISCAN [Suspect]
     Route: 042
     Dates: start: 20060526, end: 20060526
  3. OMNISCAN [Suspect]
     Route: 042
     Dates: start: 20060606, end: 20060606
  4. OMNISCAN [Suspect]
     Route: 042
     Dates: start: 20041211, end: 20041211
  5. OMNISCAN [Suspect]
     Route: 042
     Dates: start: 20050908, end: 20050908
  6. OMNISCAN [Suspect]
     Route: 042
     Dates: start: 20050909, end: 20050909
  7. PROGRAF [Concomitant]
  8. PROCRIT [Concomitant]
  9. PREDNISONE [Concomitant]
  10. ENALAPRIL [Concomitant]
  11. PROCARDIA [Concomitant]
  12. LASIX [Concomitant]
  13. ATENOLOL [Concomitant]

REACTIONS (1)
  - Nephrogenic systemic fibrosis [Not Recovered/Not Resolved]
